FAERS Safety Report 20107634 (Version 1)
Quarter: 2021Q4

REPORT INFORMATION
  Report Type: Spontaneous
  Country: US (occurrence: None)
  Receive Date: 20211124
  Receipt Date: 20211124
  Transmission Date: 20220303
  Serious: No
  Sender: FDA-Public Use
  Company Number: None

PATIENT
  Sex: Female
  Weight: 12.3 kg

DRUGS (2)
  1. IRINOTECAN [Suspect]
     Active Substance: IRINOTECAN
     Dates: end: 20211119
  2. VINCRISTINE SULFATE [Suspect]
     Active Substance: VINCRISTINE SULFATE
     Dates: end: 20211118

REACTIONS (8)
  - Blood sodium decreased [None]
  - Blood potassium decreased [None]
  - Pain [None]
  - Hypertension [None]
  - Bradycardia [None]
  - Pupils unequal [None]
  - Brain neoplasm malignant [None]
  - Hepatoblastoma [None]

NARRATIVE: CASE EVENT DATE: 20211120
